FAERS Safety Report 17218283 (Version 1)
Quarter: 2019Q4

REPORT INFORMATION
  Report Type: Spontaneous
  Country: CA (occurrence: CA)
  Receive Date: 20191231
  Receipt Date: 20191231
  Transmission Date: 20200122
  Serious: Yes (Hospitalization)
  Sender: FDA-Public Use
  Company Number: CA-TEVA-2019-CA-1160672

PATIENT
  Age: 4 Year
  Sex: Female
  Weight: 12 kg

DRUGS (8)
  1. METHOTREXATE. [Concomitant]
     Active Substance: METHOTREXATE
  2. PREDNISONE. [Concomitant]
     Active Substance: PREDNISONE
  3. PEG-L-ASPARAGINASE [Concomitant]
     Active Substance: PEGASPARGASE
  4. VINCRISTINE SULFATE. [Concomitant]
     Active Substance: VINCRISTINE SULFATE
  5. CYTARABINE INJECTION [Concomitant]
     Active Substance: CYTARABINE
  6. MERCAPTOPURINE. [Concomitant]
     Active Substance: MERCAPTOPURINE
  7. METHYLPREDNISOLONE NOS [Concomitant]
     Active Substance: METHYLPREDNISOLONE
  8. DEXAMETHASONE. [Suspect]
     Active Substance: DEXAMETHASONE
     Dosage: 6 MG/M2 DAILY;
     Route: 048

REACTIONS (9)
  - Abdominal pain [Unknown]
  - Hospitalisation [Unknown]
  - Intestinal dilatation [Unknown]
  - Abdominal X-ray [Unknown]
  - Computerised tomogram [Unknown]
  - Diarrhoea [Unknown]
  - Abdominal discomfort [Unknown]
  - Dyspnoea [Unknown]
  - Pneumatosis intestinalis [Unknown]
